FAERS Safety Report 5659429-6 (Version None)
Quarter: 2008Q1

REPORT INFORMATION
  Report Type: 
  Country: None (occurrence: None)
  Receive Date: 20080311
  Receipt Date: 20080226
  Transmission Date: 20080703
  Serious: Yes (Other)
  Sender: FDA-Public Use
  Company Number: GB-RANBAXY-2008RR-13357

PATIENT

DRUGS (3)
  1. IBUPROFEN TABLETS BP 200MG [Suspect]
     Dosage: 800 MG, QD
     Route: 048
     Dates: start: 20080128, end: 20080128
  2. SUDAFED 12 HOUR [Suspect]
     Dosage: 720 MG, UNK
     Route: 048
     Dates: start: 20080128, end: 20080128
  3. VODKA [Suspect]
     Dosage: 1 L, UNK

REACTIONS (5)
  - DEHYDRATION [None]
  - DEPRESSION [None]
  - OVERDOSE [None]
  - SUICIDAL IDEATION [None]
  - TACHYCARDIA [None]
